FAERS Safety Report 24171474 (Version 1)
Quarter: 2024Q3

REPORT INFORMATION
  Report Type: Spontaneous
  Country: FR (occurrence: FR)
  Receive Date: 20240805
  Receipt Date: 20240805
  Transmission Date: 20241017
  Serious: Yes (Hospitalization, Other)
  Sender: BAXTER
  Company Number: None

PATIENT
  Age: 57 Year
  Sex: Male
  Weight: 68 kg

DRUGS (6)
  1. IFOSFAMIDE [Suspect]
     Active Substance: IFOSFAMIDE
     Indication: Diffuse large B-cell lymphoma
     Dosage: 8353 MG, 1 TOTAL
     Route: 042
     Dates: start: 20220406
  2. CYCLOPHOSPHAMIDE [Suspect]
     Active Substance: CYCLOPHOSPHAMIDE
     Indication: Diffuse large B-cell lymphoma
     Dosage: 2550 MG, 1 TOTAL, START DATE: JUL-2021
     Route: 042
  3. YESCARTA [Suspect]
     Active Substance: AXICABTAGENE CILOLEUCEL
     Indication: Diffuse large B-cell lymphoma
     Dosage: 2550 MG, 1 TOTAL, MAMMAL/HUMAN/BLOOD
     Route: 042
     Dates: start: 20240510, end: 20240510
  4. CARBOPLATIN [Suspect]
     Active Substance: CARBOPLATIN
     Indication: Diffuse large B-cell lymphoma
     Dosage: 500 MG, 1 TOTAL, START DATE: FEB-2022
     Route: 042
  5. ETOPOSIDE [Suspect]
     Active Substance: ETOPOSIDE
     Indication: Diffuse large B-cell lymphoma
     Dosage: 504 MG, 1 TOTAL
     Route: 042
     Dates: start: 20220406
  6. ETOPOSIDE [Suspect]
     Active Substance: ETOPOSIDE
     Dosage: 504 MG, 1 TOTAL
     Route: 042
     Dates: start: 20220406

REACTIONS (2)
  - Squamous cell carcinoma of the oral cavity [Recovered/Resolved]
  - Disease recurrence [Recovered/Resolved]
